FAERS Safety Report 15543163 (Version 3)
Quarter: 2018Q4

REPORT INFORMATION
  Report Type: Spontaneous
  Country: BR (occurrence: BR)
  Receive Date: 20181023
  Receipt Date: 20181109
  Transmission Date: 20190205
  Serious: Yes (Other)
  Sender: FDA-Public Use
  Company Number: BR-PFIZER INC-2018416168

PATIENT
  Age: 65 Year
  Sex: Male

DRUGS (9)
  1. LORAZEPAM. [Concomitant]
     Active Substance: LORAZEPAM
     Dosage: 2 MG, ONCE DAILY (MORNING; ALTERNATING WITH 2 MG LORAX; TOTAL OF 4 MG LORAZEPAM DAILY)
     Dates: start: 201810
  2. LORAX [Suspect]
     Active Substance: LORAZEPAM
     Dosage: 2 MG, ONCE DAILY (AT NIGHT; ALTERNATING WITH 2 MG LORAZEPAM FROM EMS; TOTAL OF 4 MG LORAZEPAM DAILY)
     Dates: start: 201810
  3. AMLODIPINE [Concomitant]
     Active Substance: AMLODIPINE BESYLATE
     Dosage: 5 MG, TWICE DAILY (ONCE IN THE MORNING AND ONCE AT NIGHT)
  4. PURAN [Concomitant]
     Active Substance: LEVOTHYROXINE SODIUM
     Dosage: UNK
     Dates: start: 2003
  5. OMEPRAZOLE. [Concomitant]
     Active Substance: OMEPRAZOLE
     Dosage: 1X/DAY
     Dates: start: 2008
  6. ATENOLOL. [Concomitant]
     Active Substance: ATENOLOL
     Dosage: 5 MG, TWICE DAILY
  7. LOSARTAN. [Concomitant]
     Active Substance: LOSARTAN
     Dosage: UNK
  8. HYDROCHLOROTHIAZIDE. [Concomitant]
     Active Substance: HYDROCHLOROTHIAZIDE
     Dosage: 0.25 MG, ONCE DAILY (IN THE MORNING)
  9. LORAX [Suspect]
     Active Substance: LORAZEPAM
     Indication: AGITATION
     Dosage: 2 MG, TWICE DAILY (FOR MORE THAN 20 YEARS)

REACTIONS (6)
  - Bone disorder [Not Recovered/Not Resolved]
  - Drug dependence [Not Recovered/Not Resolved]
  - Diabetes mellitus [Not Recovered/Not Resolved]
  - Sleep disorder [Unknown]
  - Pain [Not Recovered/Not Resolved]
  - Product use issue [Unknown]

NARRATIVE: CASE EVENT DATE: 2008
